FAERS Safety Report 14227576 (Version 2)
Quarter: 2017Q4

REPORT INFORMATION
  Report Type: Spontaneous
  Country: FR (occurrence: FR)
  Receive Date: 20171127
  Receipt Date: 20171129
  Transmission Date: 20180321
  Serious: Yes (Other)
  Sender: FDA-Public Use
  Company Number: FR-MERCK KGAA-2036066

PATIENT
  Age: 65 Year
  Sex: Female

DRUGS (1)
  1. NOVOTHYROX [Suspect]
     Active Substance: LEVOTHYROXINE SODIUM
     Indication: PRODUCT USED FOR UNKNOWN INDICATION
     Dates: start: 201704

REACTIONS (7)
  - Bed rest [None]
  - Paralysis [None]
  - Muscle spasms [None]
  - Blood calcium increased [None]
  - Hyperhidrosis [None]
  - Muscular weakness [None]
  - Alopecia [None]

NARRATIVE: CASE EVENT DATE: 201706
